FAERS Safety Report 8289651-4 (Version None)
Quarter: 2012Q2

REPORT INFORMATION
  Report Type: 
  Country: None (occurrence: None)
  Receive Date: 20120417
  Receipt Date: 20120411
  Transmission Date: 20120825
  Serious: Yes (Other)
  Sender: FDA-Public Use
  Company Number: JP-PFIZER INC-2012034794

PATIENT
  Age: 50 Year
  Sex: Female

DRUGS (1)
  1. AZULFIDINE [Suspect]
     Indication: ARTHRALGIA
     Dosage: 250 MG, 2X/DAY
     Route: 048
     Dates: start: 20101116, end: 20101124

REACTIONS (2)
  - ERYTHEMA NODOSUM [None]
  - ACUTE FEBRILE NEUTROPHILIC DERMATOSIS [None]
